FAERS Safety Report 7807000-X (Version None)
Quarter: 2011Q4

REPORT INFORMATION
  Report Type: 
  Country: None (occurrence: None)
  Receive Date: 20111011
  Receipt Date: 20110926
  Transmission Date: 20120403
  Serious: Yes (Death)
  Sender: FDA-Public Use
  Company Number: NL-PURDUE-GBR-2011-0008846

PATIENT
  Age: 61 Year
  Sex: Male

DRUGS (9)
  1. MORPHINE SULFATE [Suspect]
     Indication: PAIN
     Dosage: 5 MG, 4-8 HOURS
     Route: 058
  2. MORPHINE SULFATE [Suspect]
     Dosage: 3.5 MG/HR, UNK
     Route: 040
  3. TRAMADOL HCL [Concomitant]
     Dosage: 50 MG, TID
     Route: 065
  4. ADRENALINE                         /00003901/ [Concomitant]
     Dosage: 6 MG, UNK
     Route: 065
  5. MORPHINE SULFATE [Suspect]
     Dosage: 5 MG/HR, UNK
     Route: 042
  6. ATROPINE [Concomitant]
     Dosage: 3 MG, UNK
     Route: 065
  7. NALOXONE [Concomitant]
     Dosage: 400 MCG, BID
     Route: 065
  8. MORPHINE SULFATE [Suspect]
     Dosage: 5 MG, UNK
     Route: 040
  9. MORPHINE SULFATE [Suspect]
     Dosage: 7 MG/HR, UNK
     Route: 040

REACTIONS (2)
  - HYPOVENTILATION [None]
  - TOXICITY TO VARIOUS AGENTS [None]
